FAERS Safety Report 9297210 (Version 3)
Quarter: 2014Q1

REPORT INFORMATION
  Report Type: Report from Study
  Country: US (occurrence: US)
  Receive Date: 20130520
  Receipt Date: 20140128
  Transmission Date: 20141002
  Serious: Yes (Hospitalization)
  Sender: FDA-Public Use
  Company Number: US-BIOGENIDEC-2013BI043495

PATIENT
  Age: 47 Year
  Sex: Female
  Weight: 57 kg

DRUGS (7)
  1. BG00012 [Suspect]
     Indication: MULTIPLE SCLEROSIS
     Dates: start: 20101012
  2. EVAMIST [Concomitant]
     Indication: HORMONE REPLACEMENT THERAPY
     Route: 061
     Dates: start: 201205
  3. IBUPROFEN [Concomitant]
     Indication: MUSCULOSKELETAL PAIN
     Route: 048
     Dates: start: 201303
  4. PROVIGIL [Concomitant]
     Indication: FATIGUE
     Route: 048
     Dates: start: 20110817
  5. VITAMIN D [Concomitant]
     Indication: SUPPLEMENTATION THERAPY
     Route: 048
     Dates: start: 20121101
  6. TESTOSTERONE CREAM [Concomitant]
     Indication: HORMONE REPLACEMENT THERAPY
     Route: 061
     Dates: start: 20121101
  7. SOLUMEDROL [Concomitant]
     Indication: MULTIPLE SCLEROSIS RELAPSE
     Route: 042
     Dates: start: 20130508

REACTIONS (1)
  - Trigeminal neuralgia [Recovered/Resolved]
